FAERS Safety Report 19714662 (Version 1)
Quarter: 2021Q3

REPORT INFORMATION
  Report Type: Spontaneous
  Country: MA (occurrence: MA)
  Receive Date: 20210818
  Receipt Date: 20210818
  Transmission Date: 20211014
  Serious: Yes (Hospitalization, Other)
  Sender: FDA-Public Use
  Company Number: MA-LUPIN PHARMACEUTICALS INC.-2021-14793

PATIENT
  Age: 45 Year
  Sex: Male

DRUGS (3)
  1. 5?AMINOSALICYLIC ACID [Concomitant]
     Active Substance: MESALAMINE
     Indication: COLITIS ULCERATIVE
     Dosage: UNK
     Route: 065
  2. METHYLPREDNISOLONE. [Suspect]
     Active Substance: METHYLPREDNISOLONE
     Indication: COLITIS ULCERATIVE
     Dosage: 60 MILLIGRAM, QD
     Route: 042
  3. AZATHIOPRINE. [Concomitant]
     Active Substance: AZATHIOPRINE
     Indication: COLITIS ULCERATIVE
     Dosage: UNK
     Route: 065

REACTIONS (2)
  - Transverse sinus thrombosis [Recovering/Resolving]
  - Cerebral venous sinus thrombosis [Recovering/Resolving]
